FAERS Safety Report 4294559-5 (Version None)
Quarter: 2004Q1

REPORT INFORMATION
  Report Type: 
  Country: None (occurrence: None)
  Receive Date: 20040213
  Receipt Date: 20020516
  Transmission Date: 20041129
  Serious: Yes (Hospitalization, Disabling)
  Sender: FDA-Public Use
  Company Number: WAES 0205USA02012

PATIENT
  Age: 46 Year
  Sex: Female

DRUGS (2)
  1. VIOXX [Suspect]
     Indication: BACK PAIN
     Route: 048
     Dates: start: 20000101, end: 20000901
  2. VIOXX [Suspect]
     Indication: NECK PAIN
     Route: 048
     Dates: start: 20000101, end: 20000901

REACTIONS (30)
  - ANAEMIA [None]
  - ANGINA PECTORIS [None]
  - ANXIETY [None]
  - BACK PAIN [None]
  - BLOOD CHOLESTEROL INCREASED [None]
  - CARDIAC FAILURE [None]
  - CORONARY ARTERY DISEASE [None]
  - CORONARY ARTERY STENOSIS [None]
  - DEPRESSION [None]
  - DUODENITIS [None]
  - GASTRITIS [None]
  - GASTROINTESTINAL HAEMORRHAGE [None]
  - GENERALISED OEDEMA [None]
  - HAEMATOCHEZIA [None]
  - HYPERTENSION [None]
  - HYPOKALAEMIA [None]
  - LARYNGITIS [None]
  - MIGRAINE [None]
  - MITRAL VALVE INCOMPETENCE [None]
  - MYOCARDIAL INFARCTION [None]
  - ORTHOSTATIC HYPOTENSION [None]
  - PALPITATIONS [None]
  - PELVIC PERITONEAL ADHESIONS [None]
  - PHLEBOTHROMBOSIS [None]
  - STENT OCCLUSION [None]
  - SUPRAVENTRICULAR EXTRASYSTOLES [None]
  - SYNCOPE [None]
  - THROMBOPHLEBITIS SUPERFICIAL [None]
  - TRICUSPID VALVE INCOMPETENCE [None]
  - VENTRICULAR EXTRASYSTOLES [None]
